FAERS Safety Report 23390275 (Version 2)
Quarter: 2024Q2

REPORT INFORMATION
  Report Type: Report from Study
  Country: US (occurrence: US)
  Receive Date: 20240111
  Receipt Date: 20240424
  Transmission Date: 20240716
  Serious: No
  Sender: FDA-Public Use
  Company Number: US-AstraZeneca-CH-00540516A

PATIENT
  Sex: Male

DRUGS (2)
  1. KANUMA [Suspect]
     Active Substance: SEBELIPASE ALFA
     Indication: Product used for unknown indication
     Dosage: 2 MILLIGRAM PER1KG
     Route: 041
     Dates: start: 2015
  2. KANUMA [Suspect]
     Active Substance: SEBELIPASE ALFA
     Dosage: 1 MILLIGRAM PER 1KG
     Route: 041
     Dates: start: 2020

REACTIONS (1)
  - Blood cholesterol increased [Recovered/Resolved with Sequelae]
